FAERS Safety Report 19651145 (Version 2)
Quarter: 2021Q3

REPORT INFORMATION
  Report Type: Spontaneous
  Country: NO (occurrence: NO)
  Receive Date: 20210802
  Receipt Date: 20210816
  Transmission Date: 20211014
  Serious: Yes (Disabling)
  Sender: FDA-Public Use
  Company Number: NO-BAUSCH-BL-2021-025660

PATIENT
  Age: 52 Year
  Sex: Female

DRUGS (3)
  1. AMPICILLIN [Concomitant]
     Active Substance: AMPICILLIN
     Indication: ENDOCARDITIS
     Dates: start: 20190424, end: 20190426
  2. GENTAMICIN. [Suspect]
     Active Substance: GENTAMICIN
     Indication: ENDOCARDITIS
     Dosage: PLANNED DURATION 2 WEEKS, ORDINATED 400 MG X 1, BUT THE PATIENT RECEIVED 480 MG IV X 1
     Route: 065
     Dates: start: 20190424, end: 20190506
  3. BENZYLPENICILLIN [Concomitant]
     Active Substance: PENICILLIN G
     Indication: ENDOCARDITIS
     Dosage: PLANNED DURATION 2?6 WEEKS
     Dates: start: 20190426

REACTIONS (5)
  - Dizziness [Unknown]
  - Balance disorder [Unknown]
  - Visual impairment [Unknown]
  - Decreased appetite [Unknown]
  - Vestibular disorder [Unknown]

NARRATIVE: CASE EVENT DATE: 2019
